FAERS Safety Report 9884841 (Version 1)
Quarter: 2014Q1

REPORT INFORMATION
  Report Type: Spontaneous
  Country: US (occurrence: US)
  Receive Date: 20140210
  Receipt Date: 20140210
  Transmission Date: 20141002
  Serious: No
  Sender: FDA-Public Use
  Company Number: US-ALLERGAN-1318521US

PATIENT
  Sex: Female

DRUGS (5)
  1. BOTOX [Suspect]
     Indication: SKIN WRINKLING
     Dosage: UNK, SINGLE
     Dates: start: 20131104, end: 20131104
  2. GENERIC LIPITOR [Concomitant]
     Indication: BLOOD CHOLESTEROL
  3. ZETIA [Concomitant]
     Indication: BLOOD CHOLESTEROL
  4. OMEPRAZOLE [Concomitant]
     Indication: GASTROOESOPHAGEAL REFLUX DISEASE
  5. LEXAPRO [Concomitant]
     Indication: ANXIETY

REACTIONS (1)
  - Drug ineffective [Unknown]
